FAERS Safety Report 21497788 (Version 1)
Quarter: 2022Q4

REPORT INFORMATION
  Report Type: Report from Study
  Country: US (occurrence: US)
  Receive Date: 20221024
  Receipt Date: 20221024
  Transmission Date: 20230113
  Serious: Yes (Hospitalization)
  Sender: FDA-Public Use
  Company Number: US-BoehringerIngelheim-2020-BI-073158

PATIENT
  Age: 77 Year
  Sex: Female

DRUGS (11)
  1. OFEV [Suspect]
     Active Substance: NINTEDANIB
     Indication: Idiopathic pulmonary fibrosis
     Route: 048
     Dates: start: 20201013
  2. OFEV [Suspect]
     Active Substance: NINTEDANIB
     Indication: Pulmonary hypertension
     Route: 048
     Dates: start: 20201029
  3. OFEV [Suspect]
     Active Substance: NINTEDANIB
     Indication: Pulmonary sarcoidosis
  4. OFEV [Suspect]
     Active Substance: NINTEDANIB
     Indication: Lung disorder
  5. OFEV [Suspect]
     Active Substance: NINTEDANIB
     Indication: Hypoxia
  6. IMODIUM [Suspect]
     Active Substance: LOPERAMIDE HYDROCHLORIDE
     Indication: Product used for unknown indication
  7. Treprostinil sodium/TYVASO [Concomitant]
     Indication: Lung disorder
     Dosage: 0.6MG/ML 3 BREATHS INHALED
     Route: 055
     Dates: start: 20220801
  8. Treprostinil sodium/TYVASO [Concomitant]
     Indication: Pulmonary arterial hypertension
     Dosage: 0.6MG/ML 6 BREATHS
     Route: 055
     Dates: start: 2022
  9. Treprostinil sodium/TYVASO [Concomitant]
     Indication: Hypoxia
     Dosage: 0.6MG/ML 6 BREATHS
     Route: 055
     Dates: start: 20220824
  10. Treprostinil sodium/TYVASO [Concomitant]
     Indication: Pulmonary fibrosis
     Dosage: 0.6MG/ML 9 BREATHS
     Route: 055
     Dates: start: 202208
  11. Treprostinil sodium/TYVASO [Concomitant]
     Indication: Pulmonary sarcoidosis

REACTIONS (28)
  - Chest discomfort [Not Recovered/Not Resolved]
  - COVID-19 [Not Recovered/Not Resolved]
  - Nausea [Unknown]
  - Vomiting [Not Recovered/Not Resolved]
  - Diarrhoea [Not Recovered/Not Resolved]
  - Abdominal pain upper [Not Recovered/Not Resolved]
  - Headache [Unknown]
  - Weight decreased [Recovered/Resolved]
  - Diarrhoea [Unknown]
  - Dyspnoea [Not Recovered/Not Resolved]
  - Decreased appetite [Recovered/Resolved]
  - Diarrhoea [Recovered/Resolved]
  - Constipation [Unknown]
  - Urinary tract infection [Unknown]
  - Taste disorder [Unknown]
  - Feeling hot [Unknown]
  - Hypophagia [Not Recovered/Not Resolved]
  - Pollakiuria [Unknown]
  - Constipation [Unknown]
  - Micturition urgency [Unknown]
  - Flushing [Unknown]
  - Productive cough [Unknown]
  - Faeces discoloured [Unknown]
  - Oesophageal operation [Recovered/Resolved]
  - Dysuria [Unknown]
  - Intentional product use issue [Unknown]
  - Feeling abnormal [Unknown]
  - Memory impairment [Unknown]

NARRATIVE: CASE EVENT DATE: 20210701
